FAERS Safety Report 25015458 (Version 2)
Quarter: 2025Q1

REPORT INFORMATION
  Report Type: Report from Study
  Country: US (occurrence: US)
  Receive Date: 20250227
  Receipt Date: 20250310
  Transmission Date: 20250409
  Serious: Yes (Hospitalization, Other)
  Sender: ABBVIE
  Company Number: US-ABBVIE-6144687

PATIENT
  Age: 63 Year
  Sex: Female
  Weight: 77.11 kg

DRUGS (3)
  1. CREON [Suspect]
     Active Substance: PANCRELIPASE AMYLASE\PANCRELIPASE LIPASE\PANCRELIPASE PROTEASE
     Indication: Pancreatic failure
     Route: 048
     Dates: start: 20111101, end: 20240419
  2. CREON [Suspect]
     Active Substance: PANCRELIPASE AMYLASE\PANCRELIPASE LIPASE\PANCRELIPASE PROTEASE
     Indication: Pancreatic failure
     Route: 048
     Dates: start: 20240503
  3. REPATHA [Concomitant]
     Active Substance: EVOLOCUMAB
     Indication: Blood cholesterol

REACTIONS (20)
  - Renal failure [Recovered/Resolved with Sequelae]
  - Animal bite [Recovered/Resolved]
  - Septic shock [Recovered/Resolved]
  - Cardiac failure [Recovering/Resolving]
  - Chest pain [Recovered/Resolved]
  - Limb discomfort [Not Recovered/Not Resolved]
  - Fall [Recovered/Resolved]
  - Pain in extremity [Recovering/Resolving]
  - Neuropathy peripheral [Recovered/Resolved]
  - Loss of consciousness [Recovered/Resolved]
  - Blood cholesterol increased [Recovered/Resolved]
  - Musculoskeletal disorder [Recovered/Resolved]
  - Depression [Not Recovered/Not Resolved]
  - Tremor [Recovered/Resolved]
  - Depressed mood [Not Recovered/Not Resolved]
  - Fatigue [Not Recovered/Not Resolved]
  - Cortisol decreased [Recovered/Resolved]
  - Pain [Recovered/Resolved]
  - Weight increased [Not Recovered/Not Resolved]
  - Cortisol increased [Unknown]

NARRATIVE: CASE EVENT DATE: 20240101
